FAERS Safety Report 11351276 (Version 1)
Quarter: 2015Q3

REPORT INFORMATION
  Report Type: Spontaneous
  Country: US (occurrence: US)
  Receive Date: 20150807
  Receipt Date: 20150807
  Transmission Date: 20151125
  Serious: No
  Sender: FDA-Public Use
  Company Number: US-JNJFOC-20141214957

PATIENT
  Age: 68 Year
  Sex: Male
  Weight: 96.16 kg

DRUGS (2)
  1. MENS ROGAINE EXTRA STRENGTH [Suspect]
     Active Substance: MINOXIDIL
     Indication: ALOPECIA
     Dosage: 1 CAPFUL
     Route: 061
  2. MENS ROGAINE EXTRA STRENGTH [Suspect]
     Active Substance: MINOXIDIL
     Indication: MEDICAL DEVICE IMPLANTATION
     Dosage: 1 CAPFUL
     Route: 061

REACTIONS (2)
  - Incorrect dosage administered [Unknown]
  - Product use issue [Unknown]
